FAERS Safety Report 8969293 (Version 1)
Quarter: 2012Q4

REPORT INFORMATION
  Report Type: 
  Country: GB (occurrence: GB)
  Receive Date: 20121217
  Receipt Date: 20121217
  Transmission Date: 20130627
  Serious: Yes (Disabling, Other)
  Sender: FDA-Public Use
  Company Number: PHHY2012GB114887

PATIENT
  Age: 66 Year
  Sex: Female
  Weight: 42 kg

DRUGS (4)
  1. ALENDRONIC ACID [Suspect]
     Indication: OSTEOPOROSIS
     Dosage: 70 mg, QW
     Route: 048
     Dates: start: 200709, end: 201207
  2. ALENDRONIC ACID [Suspect]
     Dosage: (2 weekly doses)
     Route: 048
  3. THYROXINE [Concomitant]
  4. CO-CODAMOL [Concomitant]

REACTIONS (3)
  - Sarcoidosis [Recovering/Resolving]
  - Back pain [Recovering/Resolving]
  - Malaise [Unknown]
